FAERS Safety Report 12661385 (Version 2)
Quarter: 2016Q3

REPORT INFORMATION
  Report Type: Spontaneous
  Country: US (occurrence: US)
  Receive Date: 20160817
  Receipt Date: 20160901
  Transmission Date: 20161109
  Serious: No
  Sender: FDA-Public Use
  Company Number: US-RELYPSA-RLY2016000888

PATIENT
  Age: 92 Year
  Sex: Male

DRUGS (19)
  1. ASPIRIN 81 [Concomitant]
     Active Substance: ASPIRIN
  2. FAMOTIDINE. [Concomitant]
     Active Substance: FAMOTIDINE
  3. HYDROCODONE BITARTRATE AND ACETAMINOPHEN [Concomitant]
     Active Substance: ACETAMINOPHEN\HYDROCODONE BITARTRATE
  4. NORITATE [Concomitant]
     Active Substance: METRONIDAZOLE
  5. DOXAZOSIN MESYLATE. [Concomitant]
     Active Substance: DOXAZOSIN MESYLATE
  6. FLUOCINOLONE ACETONIDE. [Concomitant]
     Active Substance: FLUOCINOLONE ACETONIDE
  7. BABY ASPIRIN [Concomitant]
     Active Substance: ASPIRIN
  8. NITROSTAT [Concomitant]
     Active Substance: NITROGLYCERIN
  9. VITAMIN D                          /00107901/ [Concomitant]
     Active Substance: ERGOCALCIFEROL
  10. VELTASSA [Suspect]
     Active Substance: PATIROMER
     Indication: HYPERKALAEMIA
     Dosage: 8.4 G, Q.D.
     Route: 048
     Dates: start: 20160513, end: 201606
  11. ATENOLOL. [Concomitant]
     Active Substance: ATENOLOL
  12. ENSURE [Concomitant]
     Active Substance: AMINO ACIDS\DEXTROSE\ELECTROLYTES NOS\SOYBEAN OIL\VITAMINS
  13. EPOGEN [Concomitant]
     Active Substance: ERYTHROPOIETIN
  14. TUMS ULTRA [Concomitant]
     Active Substance: CALCIUM CARBONATE
  15. BENADRYL ALLERGY [Concomitant]
     Active Substance: DIPHENHYDRAMINE HYDROCHLORIDE
  16. DEXTROSE. [Concomitant]
     Active Substance: DEXTROSE
  17. VITAMIN E                          /00110501/ [Concomitant]
     Active Substance: TOCOPHEROL
  18. ZEMPLAR [Concomitant]
     Active Substance: PARICALCITOL
  19. AMLODIPINE BESYLATE. [Concomitant]
     Active Substance: AMLODIPINE BESYLATE

REACTIONS (1)
  - Diarrhoea [Recovered/Resolved]

NARRATIVE: CASE EVENT DATE: 20160531
